FAERS Safety Report 15429651 (Version 1)
Quarter: 2018Q3

REPORT INFORMATION
  Report Type: Spontaneous
  Country: GB (occurrence: GB)
  Receive Date: 20180926
  Receipt Date: 20180926
  Transmission Date: 20181010
  Serious: Yes (Other)
  Sender: FDA-Public Use
  Company Number: GB-PFIZER INC-2018383167

PATIENT
  Age: 4 Decade
  Sex: Male

DRUGS (15)
  1. MINOCYCLINE [Suspect]
     Active Substance: MINOCYCLINE\MINOCYCLINE HYDROCHLORIDE
     Indication: LUNG DISORDER
     Dosage: 100 MG, 2X/DAY
     Route: 048
  2. MINOCYCLINE [Suspect]
     Active Substance: MINOCYCLINE\MINOCYCLINE HYDROCHLORIDE
     Indication: CYSTIC FIBROSIS
  3. CLOFAZIMINE [Suspect]
     Active Substance: CLOFAZIMINE
     Indication: CYSTIC FIBROSIS
  4. MOXIFLOXACIN. [Suspect]
     Active Substance: MOXIFLOXACIN
     Indication: LUNG DISORDER
     Dosage: 400 MG, 1X/DAY
     Route: 048
  5. MOXIFLOXACIN. [Suspect]
     Active Substance: MOXIFLOXACIN
     Indication: CYSTIC FIBROSIS
  6. AMIKACIN SULFATE. [Suspect]
     Active Substance: AMIKACIN SULFATE
     Indication: MYCOBACTERIUM ABSCESSUS INFECTION
  7. MINOCYCLINE [Suspect]
     Active Substance: MINOCYCLINE\MINOCYCLINE HYDROCHLORIDE
     Indication: MYCOBACTERIUM ABSCESSUS INFECTION
  8. CLOFAZIMINE [Suspect]
     Active Substance: CLOFAZIMINE
     Indication: MYCOBACTERIUM ABSCESSUS INFECTION
  9. MOXIFLOXACIN. [Suspect]
     Active Substance: MOXIFLOXACIN
     Indication: MYCOBACTERIUM ABSCESSUS INFECTION
  10. AMIKACIN SULFATE. [Suspect]
     Active Substance: AMIKACIN SULFATE
     Indication: CYSTIC FIBROSIS
  11. AMIKACIN SULFATE. [Suspect]
     Active Substance: AMIKACIN SULFATE
     Indication: LUNG DISORDER
     Dosage: 500 MG, 2X/DAY (NEBULISED)
     Route: 048
  12. AZITHROMYCIN ANHYDROUS. [Suspect]
     Active Substance: AZITHROMYCIN ANHYDROUS
     Indication: CYSTIC FIBROSIS
     Dosage: 250 MG, 1X/DAY (ORAL AND NEBULISED)
     Route: 048
  13. AZITHROMYCIN ANHYDROUS. [Suspect]
     Active Substance: AZITHROMYCIN ANHYDROUS
     Indication: LUNG DISORDER
     Dosage: 500 MG, 1X/DAY
     Route: 048
  14. AZITHROMYCIN ANHYDROUS. [Suspect]
     Active Substance: AZITHROMYCIN ANHYDROUS
     Indication: MYCOBACTERIUM ABSCESSUS INFECTION
  15. CLOFAZIMINE [Suspect]
     Active Substance: CLOFAZIMINE
     Indication: LUNG DISORDER
     Dosage: 100 MG, 1X/DAY
     Route: 048

REACTIONS (2)
  - Facial paralysis [Recovered/Resolved]
  - Deafness unilateral [Not Recovered/Not Resolved]
